FAERS Safety Report 5329957-1 (Version None)
Quarter: 2007Q2

REPORT INFORMATION
  Report Type: 
  Country: None (occurrence: None)
  Receive Date: 20070521
  Receipt Date: 20070510
  Transmission Date: 20071010
  Serious: Yes (Other)
  Sender: FDA-Public Use
  Company Number: US-JNJFOC-20070503212

PATIENT
  Age: 6 Decade
  Sex: Female
  Weight: 81.65 kg

DRUGS (4)
  1. DURAGESIC-100 [Suspect]
     Indication: PAIN
     Route: 062
  2. PERCOCET [Concomitant]
     Indication: PAIN
     Route: 048
  3. ATIVAN [Concomitant]
     Indication: ANXIETY
     Route: 048
  4. AMBIEN [Concomitant]
     Indication: NERVOUSNESS
     Route: 048

REACTIONS (5)
  - FEELING HOT [None]
  - FEELING HOT AND COLD [None]
  - FLUSHING [None]
  - HYPERTENSION [None]
  - INADEQUATE ANALGESIA [None]
